FAERS Safety Report 4861786-5 (Version None)
Quarter: 2005Q4

REPORT INFORMATION
  Report Type: 
  Country: None (occurrence: None)
  Receive Date: 20051130
  Receipt Date: 20050728
  Transmission Date: 20060501
  Serious: Yes (Other)
  Sender: FDA-Public Use
  Company Number: 2005107671

PATIENT
  Age: 66 Year
  Sex: Male
  Weight: 81.1939 kg

DRUGS (1)
  1. ZYVOX [Suspect]
     Indication: OSTEOMYELITIS
     Dosage: 600 MG (600 MG, DAILY INTERVAL: EVERY DAY), ORAL
     Route: 048
     Dates: start: 20040101

REACTIONS (1)
  - BLINDNESS [None]
